FAERS Safety Report 6512797-5 (Version None)
Quarter: 2009Q4

REPORT INFORMATION
  Report Type: 
  Country: None (occurrence: None)
  Receive Date: 20091217
  Receipt Date: 20091005
  Transmission Date: 20100525
  Serious: Yes (Hospitalization)
  Sender: FDA-Public Use
  Company Number: 2009010577

PATIENT
  Age: 30 Year
  Sex: Male
  Weight: 115.6672 kg

DRUGS (7)
  1. NUVIGIL [Suspect]
     Indication: SLEEP APNOEA SYNDROME
     Dosage: 250 MG (250 MG, 1 IN 1 D), ORAL; 150 MG (150 MG, 1 IN 1 D), ORAL
     Route: 048
     Dates: start: 20090709, end: 20090817
  2. NUVIGIL [Suspect]
     Indication: SLEEP APNOEA SYNDROME
     Dosage: 250 MG (250 MG, 1 IN 1 D), ORAL; 150 MG (150 MG, 1 IN 1 D), ORAL
     Route: 048
     Dates: start: 20090818, end: 20090822
  3. PREVACID [Concomitant]
  4. EFFEXOR XR [Concomitant]
  5. KLONOPIN [Concomitant]
  6. GEODON [Concomitant]
  7. LISINOPRIL [Concomitant]

REACTIONS (5)
  - BLOOD PRESSURE INCREASED [None]
  - CHEST PAIN [None]
  - HEART RATE INCREASED [None]
  - PALPITATIONS [None]
  - TACHYCARDIA [None]
